FAERS Safety Report 9776917 (Version 1)
Quarter: 2013Q4

REPORT INFORMATION
  Report Type: Spontaneous
  Country: US (occurrence: US)
  Receive Date: 20131221
  Receipt Date: 20131221
  Transmission Date: 20140711
  Serious: Yes (Other)
  Sender: FDA-Public Use
  Company Number: US-ASTRAZENECA-2013SE91507

PATIENT
  Sex: Female

DRUGS (3)
  1. CRESTOR [Suspect]
     Route: 048
  2. CRESTOR [Suspect]
     Route: 048
     Dates: start: 201312, end: 201312
  3. CRESTOR [Suspect]
     Route: 048

REACTIONS (5)
  - Pneumonia [Unknown]
  - Blood triglycerides abnormal [Unknown]
  - Influenza [Unknown]
  - Malaise [Unknown]
  - Muscle spasms [Unknown]
